FAERS Safety Report 12626241 (Version 2)
Quarter: 2016Q3

REPORT INFORMATION
  Report Type: Report from Study
  Country: NL (occurrence: NL)
  Receive Date: 20160805
  Receipt Date: 20160812
  Transmission Date: 20161109
  Serious: Yes (Hospitalization, Disabling, Other)
  Sender: FDA-Public Use
  Company Number: NL-AMGEN-NLDSL2016100015

PATIENT
  Age: 89 Year
  Sex: Male

DRUGS (1)
  1. ARANESP [Suspect]
     Active Substance: DARBEPOETIN ALFA
     Indication: NEPHROGENIC ANAEMIA
     Dosage: 40 MCG (100 MCG/ML 0.4 ML), Q2WK
     Route: 058

REACTIONS (4)
  - Disability [Unknown]
  - Hospitalisation [Recovered/Resolved]
  - Terminal state [Unknown]
  - Living in residential institution [Unknown]

NARRATIVE: CASE EVENT DATE: 201607
